FAERS Safety Report 7457889-1 (Version None)
Quarter: 2011Q2

REPORT INFORMATION
  Report Type: 
  Country: None (occurrence: None)
  Receive Date: 20110504
  Receipt Date: 20110422
  Transmission Date: 20111010
  Serious: Yes (Other)
  Sender: FDA-Public Use
  Company Number: SI-JNJFOC-20110311008

PATIENT

DRUGS (3)
  1. SOLU-MEDROL [Concomitant]
  2. TAVEGIL [Concomitant]
  3. CAELYX [Suspect]
     Indication: PRODUCT USED FOR UNKNOWN INDICATION
     Route: 042

REACTIONS (4)
  - FLUSHING [None]
  - FEELING HOT [None]
  - INFUSION RELATED REACTION [None]
  - PRODUCT QUALITY ISSUE [None]
